FAERS Safety Report 7990940-9 (Version None)
Quarter: 2011Q4

REPORT INFORMATION
  Report Type: 
  Country: None (occurrence: None)
  Receive Date: 20111219
  Receipt Date: 20111205
  Transmission Date: 20120403
  Serious: Yes (Other)
  Sender: FDA-Public Use
  Company Number: US-ROCHE-1019469

PATIENT
  Sex: Female

DRUGS (10)
  1. SODIUM BICARBONATE [Concomitant]
  2. SIMVASTATIN [Concomitant]
  3. FOLIC ACID [Concomitant]
  4. PREDNISONE TAB [Concomitant]
  5. ASPIRIN [Concomitant]
     Route: 048
  6. NEORAL [Concomitant]
  7. BACTRIM [Suspect]
     Indication: PRODUCT USED FOR UNKNOWN INDICATION
     Route: 065
  8. MYCOPHENOLATE MOFETIL (CELLCEPT) [Suspect]
     Indication: RENAL TRANSPLANT
     Route: 065
     Dates: start: 20080820
  9. VALCYTE [Suspect]
     Indication: RENAL TRANSPLANT
     Route: 065
     Dates: start: 20080820
  10. PRILOSEC [Concomitant]

REACTIONS (8)
  - FEMUR FRACTURE [None]
  - MUSCULAR WEAKNESS [None]
  - PATELLA FRACTURE [None]
  - BLOOD CALCIUM INCREASED [None]
  - BLOOD PARATHYROID HORMONE INCREASED [None]
  - PAIN IN EXTREMITY [None]
  - SKIN FISSURES [None]
  - ARTHRALGIA [None]
